FAERS Safety Report 21650597 (Version 1)
Quarter: 2022Q4

REPORT INFORMATION
  Report Type: Spontaneous
  Country: FR (occurrence: FR)
  Receive Date: 20221128
  Receipt Date: 20221128
  Transmission Date: 20230112
  Serious: Yes (Hospitalization, Other)
  Sender: FDA-Public Use
  Company Number: FR-SA-SAC20221123001012

PATIENT
  Age: 58 Year
  Sex: Male

DRUGS (5)
  1. PRIMAQUINE PHOSPHATE [Suspect]
     Active Substance: PRIMAQUINE PHOSPHATE
     Indication: Malaria
     Dosage: 30 MG, QD
     Route: 065
     Dates: start: 20140130, end: 20140207
  2. AMLODIPINE [Concomitant]
     Active Substance: AMLODIPINE BESYLATE
  3. GLICLAZIDE [Concomitant]
     Active Substance: GLICLAZIDE
  4. TRAMADOL [Concomitant]
     Active Substance: TRAMADOL
  5. HYDROCHLOROTHIAZIDE\IRBESARTAN [Concomitant]
     Active Substance: HYDROCHLOROTHIAZIDE\IRBESARTAN

REACTIONS (1)
  - Neutropenia [Recovered/Resolved]
